FAERS Safety Report 6301697-1 (Version None)
Quarter: 2009Q3

REPORT INFORMATION
  Report Type: 
  Country: None (occurrence: None)
  Receive Date: 20090805
  Receipt Date: 20090721
  Transmission Date: 20100115
  Serious: Yes (Hospitalization)
  Sender: FDA-Public Use
  Company Number: 001363

PATIENT
  Sex: Female

DRUGS (2)
  1. OMEPRAZOLE [Suspect]
     Indication: PROPHYLAXIS AGAINST GASTROINTESTINAL ULCER
     Dosage: (10 MG ORAL)
     Route: 048
     Dates: start: 20090629, end: 20090703
  2. NABUCOX (NABUCOX 500 MG) (NOT SPECIFIED) [Suspect]
     Indication: ISCHAEMIC LIMB PAIN
     Dosage: (2 G ORAL)
     Route: 048
     Dates: start: 20090629, end: 20090703

REACTIONS (2)
  - DRUG RASH WITH EOSINOPHILIA AND SYSTEMIC SYMPTOMS [None]
  - PYREXIA [None]
